FAERS Safety Report 10511742 (Version 1)
Quarter: 2014Q4

REPORT INFORMATION
  Report Type: Spontaneous
  Country: ES (occurrence: ES)
  Receive Date: 20141010
  Receipt Date: 20141010
  Transmission Date: 20150528
  Serious: Yes (Hospitalization)
  Sender: FDA-Public Use
  Company Number: ES-ELI_LILLY_AND_COMPANY-ES201409010541

PATIENT
  Sex: Male

DRUGS (1)
  1. ZYPADHERA [Suspect]
     Active Substance: OLANZAPINE PAMOATE
     Indication: SCHIZOAFFECTIVE DISORDER
     Dosage: 405 MG, MONTHLY (1/M)
     Route: 030
     Dates: start: 201302

REACTIONS (6)
  - Dizziness [Unknown]
  - Restless legs syndrome [Unknown]
  - Somnolence [Unknown]
  - Vision blurred [Unknown]
  - Balance disorder [Unknown]
  - Akathisia [Unknown]

NARRATIVE: CASE EVENT DATE: 20140830
